FAERS Safety Report 25599961 (Version 1)
Quarter: 2025Q3

REPORT INFORMATION
  Report Type: Spontaneous
  Country: BR (occurrence: BR)
  Receive Date: 20250724
  Receipt Date: 20250724
  Transmission Date: 20251021
  Serious: Yes (Other)
  Sender: ALKEM
  Company Number: BR-ALKEM LABORATORIES LIMITED-BR-ALKEM-2024-22162

PATIENT
  Age: 50 Year
  Sex: Male

DRUGS (1)
  1. ITRACONAZOLE [Suspect]
     Active Substance: ITRACONAZOLE
     Indication: Paracoccidioides infection
     Dosage: 200 MILLIGRAM, BID
     Route: 065

REACTIONS (1)
  - Cardiac failure congestive [Recovered/Resolved]
